FAERS Safety Report 13059427 (Version 2)
Quarter: 2016Q4

REPORT INFORMATION
  Report Type: Report from Study
  Country: FR (occurrence: FR)
  Receive Date: 20161223
  Receipt Date: 20161227
  Transmission Date: 20170207
  Serious: Yes (Hospitalization, Other)
  Sender: FDA-Public Use
  Company Number: FR-JNJFOC-20160112249

PATIENT
  Age: 62 Year
  Sex: Female

DRUGS (12)
  1. SIMPONI [Suspect]
     Active Substance: GOLIMUMAB
     Indication: ANKYLOSING SPONDYLITIS
     Route: 058
     Dates: start: 20161011
  2. SIMPONI [Suspect]
     Active Substance: GOLIMUMAB
     Indication: ANKYLOSING SPONDYLITIS
     Route: 058
     Dates: start: 20161114
  3. ANETHOLE TRITHIONE [Concomitant]
     Dosage: 400 (UNIT UNSPECIFIED)
     Route: 048
  4. MOPRAL [Concomitant]
     Active Substance: OMEPRAZOLE SODIUM
     Indication: PROPHYLAXIS AGAINST GASTROINTESTINAL ULCER
     Dosage: 400 (UNIT UNSPECIFIED)
     Route: 048
  5. SIMPONI [Suspect]
     Active Substance: GOLIMUMAB
     Indication: ANKYLOSING SPONDYLITIS
     Route: 058
     Dates: start: 20160711
  6. FENOFIBRATE. [Concomitant]
     Active Substance: FENOFIBRATE
     Indication: HYPERCHOLESTEROLAEMIA
     Dosage: 400 (UNIT UNSPECIFIED)
     Route: 048
  7. POTASSIUM [Concomitant]
     Active Substance: POTASSIUM
     Indication: BLOOD PRESSURE INCREASED
     Dosage: 400 (UNIT UNSPECIFIED)
     Route: 048
  8. IBUPROFENE [Concomitant]
     Active Substance: IBUPROFEN
     Dosage: 400 (UNIT UNSPECIFIED)
     Route: 065
  9. HYDROCHLOROTHIAZIDE. [Concomitant]
     Active Substance: HYDROCHLOROTHIAZIDE
     Indication: BLOOD PRESSURE INCREASED
     Dosage: 400 (UNIT UNSPECIFIED)
     Route: 048
  10. SIMPONI [Suspect]
     Active Substance: GOLIMUMAB
     Indication: ANKYLOSING SPONDYLITIS
     Route: 058
     Dates: start: 20151211
  11. SIMPONI [Suspect]
     Active Substance: GOLIMUMAB
     Indication: ANKYLOSING SPONDYLITIS
     Route: 058
     Dates: start: 20160607
  12. BISOPROLOL [Concomitant]
     Active Substance: BISOPROLOL
     Indication: BLOOD PRESSURE INCREASED
     Dosage: 400 (UNIT UNSPECIFIED)
     Route: 048

REACTIONS (11)
  - Spondylitis [Unknown]
  - Subcutaneous abscess [Recovered/Resolved]
  - Lacrimal duct neoplasm [Recovered/Resolved]
  - Spinal column stenosis [Unknown]
  - Urinary tract infection [Recovered/Resolved]
  - Back pain [Unknown]
  - Gait disturbance [Unknown]
  - Movement disorder [Unknown]
  - General physical condition abnormal [Unknown]
  - Ischaemic stroke [Recovered/Resolved]
  - Herpes zoster [Recovered/Resolved with Sequelae]

NARRATIVE: CASE EVENT DATE: 20160108
